FAERS Safety Report 20821571 (Version 17)
Quarter: 2025Q2

REPORT INFORMATION
  Report Type: Spontaneous
  Country: US (occurrence: US)
  Receive Date: 20220512
  Receipt Date: 20250403
  Transmission Date: 20250717
  Serious: Yes (Other)
  Sender: PFIZER
  Company Number: US-PFIZER INC-202200650599

PATIENT
  Age: 74 Year
  Sex: Female

DRUGS (2)
  1. ESTRING [Suspect]
     Active Substance: ESTRADIOL
     Dosage: 1 DEVICE EVERY THREE MONTHS
     Route: 067
  2. ESTRING [Suspect]
     Active Substance: ESTRADIOL
     Dosage: 7.5 MCG / 24 HRS VAGINAL RING 1 DEVICE VAGINAL, EVERY 3 MONTHS
     Route: 067

REACTIONS (7)
  - Cerebrovascular accident [Unknown]
  - Heart failure with reduced ejection fraction [Unknown]
  - Ischaemic stroke [Unknown]
  - Device use issue [Unknown]
  - Expired product administered [Unknown]
  - Cardiac disorder [Unknown]
  - Memory impairment [Not Recovered/Not Resolved]

NARRATIVE: CASE EVENT DATE: 20250201
